FAERS Safety Report 16213105 (Version 1)
Quarter: 2019Q2

REPORT INFORMATION
  Report Type: Spontaneous
  Country: GB (occurrence: GB)
  Receive Date: 20190418
  Receipt Date: 20190418
  Transmission Date: 20190711
  Serious: Yes (Other)
  Sender: FDA-Public Use
  Company Number: GB-AVION PHARMACEUTICALS, LLC-2065840

PATIENT
  Age: 49 Year
  Sex: Female

DRUGS (2)
  1. GESTODENE [Suspect]
     Active Substance: GESTODENE
  2. BALCOLTRA [Suspect]
     Active Substance: ETHINYL ESTRADIOL\LEVONORGESTREL
     Indication: GENDER REASSIGNMENT THERAPY

REACTIONS (11)
  - Ischaemia [Unknown]
  - Rheumatoid arthritis [Recovering/Resolving]
  - Raynaud^s phenomenon [Recovered/Resolved]
  - Dysphagia [Unknown]
  - Arthralgia [Recovered/Resolved]
  - Exercise tolerance decreased [Unknown]
  - Joint stiffness [Recovered/Resolved]
  - Gastrooesophageal reflux disease [Unknown]
  - Skin hypertrophy [Recovering/Resolving]
  - Systemic scleroderma [Recovering/Resolving]
  - Interstitial lung disease [Recovered/Resolved]
